FAERS Safety Report 4277350-5 (Version None)
Quarter: 2004Q1

REPORT INFORMATION
  Report Type: 
  Country: None (occurrence: None)
  Receive Date: 20040122
  Receipt Date: 20040116
  Transmission Date: 20041129
  Serious: Yes (Death)
  Sender: FDA-Public Use
  Company Number: PHNU2004DE00562

PATIENT
  Sex: Male

DRUGS (1)
  1. CO-DIOVAN [Suspect]
     Dosage: 1 DF, QD
     Route: 048
     Dates: start: 20000301

REACTIONS (1)
  - SUDDEN DEATH [None]
